FAERS Safety Report 17259496 (Version 1)
Quarter: 2020Q1

REPORT INFORMATION
  Report Type: Spontaneous
  Country: US (occurrence: US)
  Receive Date: 20200110
  Receipt Date: 20200110
  Transmission Date: 20200409
  Serious: Yes (Other)
  Sender: FDA-Public Use
  Company Number: US-SHIRE-US202000366

PATIENT

DRUGS (1)
  1. GATTEX [Suspect]
     Active Substance: TEDUGLUTIDE\WATER
     Indication: PRODUCT USED FOR UNKNOWN INDICATION
     Dosage: 0.3100 UNITS UNKNOWN, 1X/DAY:QD
     Route: 058
     Dates: start: 20180823

REACTIONS (2)
  - Pharyngeal neoplasm [Recovering/Resolving]
  - Spinal fracture [Recovering/Resolving]
